FAERS Safety Report 5788870-6 (Version None)
Quarter: 2008Q2

REPORT INFORMATION
  Report Type: 
  Country: None (occurrence: None)
  Receive Date: 20080624
  Receipt Date: 20080307
  Transmission Date: 20081010
  Serious: Yes (Life-Threatening, Hospitalization, Other)
  Sender: FDA-Public Use
  Company Number: 2005BI016043

PATIENT
  Age: 61 Year
  Sex: Female

DRUGS (11)
  1. ZEVALIN [Suspect]
     Indication: MANTLE CELL LYMPHOMA RECURRENT
     Dosage: 0.4 MCI/KG; 1X; IV
     Route: 042
     Dates: start: 20040722, end: 20040722
  2. SPIRONOLACTONE [Concomitant]
  3. KALINOR RETARD [Concomitant]
  4. BUSCOPAN [Concomitant]
  5. METOCLOPRAMIDE HYDROCHLORIDE [Concomitant]
  6. BISOPROLOL FUMARATE [Concomitant]
  7. MORPHINE SULFATE [Concomitant]
  8. PANTOPRAZOLE SODIUM [Concomitant]
  9. LASIX [Concomitant]
  10. RITUXIMAB [Concomitant]
  11. RITUXIMAB [Concomitant]

REACTIONS (11)
  - BACTERIAL INFECTION [None]
  - DIARRHOEA [None]
  - DRUG TOXICITY [None]
  - EMPYEMA [None]
  - GRANULOCYTOPENIA [None]
  - HAEMOGLOBIN DECREASED [None]
  - HEPATOTOXICITY [None]
  - LEUKOPENIA [None]
  - PLEURAL EFFUSION [None]
  - SEPSIS [None]
  - THROMBOCYTOPENIA [None]
